FAERS Safety Report 25371728 (Version 1)
Quarter: 2025Q2

REPORT INFORMATION
  Report Type: Spontaneous
  Country: CH (occurrence: CH)
  Receive Date: 20250529
  Receipt Date: 20250529
  Transmission Date: 20250717
  Serious: Yes (Other)
  Sender: AMGEN
  Company Number: CH-AMGEN-CHESP2025100772

PATIENT

DRUGS (1)
  1. XGEVA [Suspect]
     Active Substance: DENOSUMAB
     Indication: Product used for unknown indication
     Route: 058

REACTIONS (29)
  - Neutropenia [Unknown]
  - Hepatitis [Unknown]
  - Alcohol use disorder [Unknown]
  - Pneumonia [Unknown]
  - General physical condition abnormal [Unknown]
  - Administration site reaction [Unknown]
  - Injection site reaction [Unknown]
  - Drug specific antibody present [Unknown]
  - Adverse event [Unknown]
  - Influenza [Unknown]
  - Gastrointestinal disorder [Unknown]
  - Investigation abnormal [Unknown]
  - Nasopharyngitis [Unknown]
  - Blood creatine phosphokinase increased [Unknown]
  - Nervous system disorder [Unknown]
  - Therapy cessation [Unknown]
  - Musculoskeletal disorder [Unknown]
  - Connective tissue disorder [Unknown]
  - Injection site erythema [Unknown]
  - Injection site pain [Unknown]
  - Injection site swelling [Unknown]
  - Injection site haematoma [Unknown]
  - Injection site haemorrhage [Unknown]
  - Injection site bruising [Unknown]
  - Neutralising antibodies positive [Unknown]
  - Infection [Unknown]
  - Upper respiratory tract infection [Unknown]
  - Arthralgia [Unknown]
  - Headache [Unknown]
